FAERS Safety Report 6306128-3 (Version None)
Quarter: 2009Q3

REPORT INFORMATION
  Report Type: 
  Country: None (occurrence: None)
  Receive Date: 20090810
  Receipt Date: 20090803
  Transmission Date: 20100115
  Serious: Yes (Hospitalization)
  Sender: FDA-Public Use
  Company Number: 09US002935

PATIENT
  Age: 63 Year
  Sex: Female

DRUGS (1)
  1. ACETAMINOPHEN [Suspect]
     Indication: PAIN
     Dosage: 1000 MG, QID, ORAL
     Route: 048
     Dates: start: 20060801

REACTIONS (4)
  - HYPOKALAEMIA [None]
  - HYPOTENSION [None]
  - INTENTIONAL DRUG MISUSE [None]
  - PRODUCT COMMINGLING [None]
